FAERS Safety Report 5722485-0 (Version None)
Quarter: 2008Q2

REPORT INFORMATION
  Report Type: 
  Country: None (occurrence: None)
  Receive Date: 20080429
  Receipt Date: 20071114
  Transmission Date: 20081010
  Serious: No
  Sender: FDA-Public Use
  Company Number: US-ASTRAZENECA-2007UW26506

PATIENT
  Age: 83 Year
  Sex: Female
  Weight: 56.7 kg

DRUGS (4)
  1. NEXIUM [Suspect]
     Indication: OESOPHAGEAL DISORDER
     Route: 048
     Dates: start: 20071001
  2. NEXIUM [Suspect]
     Indication: GASTRIC DISORDER
     Route: 048
     Dates: start: 20071001
  3. AMITRIPTYLINE HCL [Concomitant]
     Route: 048
  4. LORAZEPAM [Concomitant]
     Route: 048

REACTIONS (2)
  - CONFUSIONAL STATE [None]
  - HALLUCINATION, AUDITORY [None]
